FAERS Safety Report 19778848 (Version 1)
Quarter: 2021Q3

REPORT INFORMATION
  Report Type: Spontaneous
  Country: US (occurrence: US)
  Receive Date: 20210830
  Receipt Date: 20210830
  Transmission Date: 20211014
  Serious: No
  Sender: FDA-Public Use
  Company Number: None

PATIENT
  Age: 40 Year
  Sex: Male

DRUGS (1)
  1. TALTZ [Suspect]
     Active Substance: IXEKIZUMAB
     Indication: PSORIASIS
     Route: 058
     Dates: end: 20210516

REACTIONS (4)
  - Injection site swelling [None]
  - Injection site rash [None]
  - Injection site pruritus [None]
  - Hypersensitivity [None]

NARRATIVE: CASE EVENT DATE: 20210516
